FAERS Safety Report 5797686-6 (Version None)
Quarter: 2008Q2

REPORT INFORMATION
  Report Type: 
  Country: None (occurrence: None)
  Receive Date: 20080630
  Receipt Date: 20070802
  Transmission Date: 20081010
  Serious: Yes (Death)
  Sender: FDA-Public Use
  Company Number: FPI-07-050

PATIENT
  Age: 33 Year
  Sex: Female

DRUGS (1)
  1. REPRONEX [Suspect]
     Indication: INFERTILITY

REACTIONS (4)
  - DRUG EXPOSURE DURING PREGNANCY [None]
  - PREMATURE BABY [None]
  - STILLBIRTH [None]
  - TWIN PREGNANCY [None]
